FAERS Safety Report 5608146-7 (Version None)
Quarter: 2008Q1

REPORT INFORMATION
  Report Type: 
  Country: None (occurrence: None)
  Receive Date: 20080130
  Receipt Date: 20080118
  Transmission Date: 20080703
  Serious: Yes (Hospitalization, Other)
  Sender: FDA-Public Use
  Company Number: US-ELI_LILLY_AND_COMPANY-US200712004321

PATIENT
  Sex: Female
  Weight: 54.421 kg

DRUGS (4)
  1. EVISTA [Suspect]
     Indication: OSTEOPOROSIS
     Dates: start: 20030101
  2. ASPIRIN [Concomitant]
     Dosage: UNK, DAILY (1/D)
  3. CALCIUM WITH VITAMIN D [Concomitant]
     Dosage: 600 UNK, 2/D
  4. PLAQUENIL [Concomitant]
     Dosage: 200 UNK, DAILY (1/D)
     Route: 048

REACTIONS (1)
  - CEREBELLAR INFARCTION [None]
